FAERS Safety Report 8785680 (Version 2)
Quarter: 2012Q4

REPORT INFORMATION
  Report Type: Report from Study
  Country: US (occurrence: US)
  Receive Date: 20120914
  Receipt Date: 20120918
  Transmission Date: 20130627
  Serious: Yes (Hospitalization)
  Sender: FDA-Public Use
  Company Number: US-JNJFOC-20120904478

PATIENT
  Age: 1 Year
  Sex: Male

DRUGS (4)
  1. REMICADE [Suspect]
     Indication: CROHN^S DISEASE
     Route: 042
     Dates: start: 20111122
  2. AZATHIOPRINE [Concomitant]
  3. FOLIC ACID [Concomitant]
  4. MULTIVIT [Concomitant]

REACTIONS (1)
  - Gastrointestinal stoma complication [Recovered/Resolved]
